FAERS Safety Report 7413445-2 (Version None)
Quarter: 2011Q2

REPORT INFORMATION
  Report Type: 
  Country: None (occurrence: None)
  Receive Date: 20110413
  Receipt Date: 20110407
  Transmission Date: 20111010
  Serious: Yes (Hospitalization)
  Sender: FDA-Public Use
  Company Number: PHHY2011JP14274

PATIENT
  Age: 52 Year
  Sex: Male

DRUGS (1)
  1. VOLTAREN [Suspect]
     Indication: GOUT
     Dosage: 37.5 MG, BID
     Route: 048
     Dates: start: 20110128, end: 20110212

REACTIONS (1)
  - INTERSTITIAL LUNG DISEASE [None]
